FAERS Safety Report 13063942 (Version 1)
Quarter: 2016Q4

REPORT INFORMATION
  Report Type: Spontaneous
  Country: CA (occurrence: CA)
  Receive Date: 20161227
  Receipt Date: 20161227
  Transmission Date: 20170207
  Serious: Yes (Other)
  Sender: FDA-Public Use
  Company Number: CA-AUROBINDO-AUR-APL-2016-15640

PATIENT
  Age: 64 Year
  Sex: Male

DRUGS (1)
  1. ROSUVASTATIN. [Suspect]
     Active Substance: ROSUVASTATIN
     Indication: PRODUCT USED FOR UNKNOWN INDICATION
     Dosage: UNK
     Route: 065

REACTIONS (5)
  - Myopathy [Recovering/Resolving]
  - Dyspnoea [Recovering/Resolving]
  - Diaphragm muscle weakness [Recovering/Resolving]
  - Orthopnoea [Recovering/Resolving]
  - Myalgia [Recovering/Resolving]
